FAERS Safety Report 8406106-4 (Version None)
Quarter: 2012Q2

REPORT INFORMATION
  Report Type: 
  Country: None (occurrence: None)
  Receive Date: 20120604
  Receipt Date: 20120529
  Transmission Date: 20120825
  Serious: Yes (Other)
  Sender: FDA-Public Use
  Company Number: JP-B.I. PHARMACEUTICALS,INC./RIDGEFIELD-2012-BP-12664NB

PATIENT
  Age: 70 Year
  Sex: Male

DRUGS (3)
  1. AMARYL [Concomitant]
     Indication: DIABETES MELLITUS
     Dosage: 0.9 MG
     Route: 048
  2. PERSANTIN [Suspect]
     Indication: PROTEINURIA
     Route: 048
  3. ALLOID G [Concomitant]
     Route: 065

REACTIONS (2)
  - OESOPHAGEAL CARCINOMA [None]
  - SENSATION OF FOREIGN BODY [None]
